FAERS Safety Report 4802743-4 (Version None)
Quarter: 2005Q4

REPORT INFORMATION
  Report Type: 
  Country: None (occurrence: None)
  Receive Date: 20051017
  Receipt Date: 20051017
  Transmission Date: 20060501
  Serious: Yes (Other)
  Sender: FDA-Public Use
  Company Number: None

PATIENT
  Age: 34 Year
  Sex: Female
  Weight: 56.6996 kg

DRUGS (1)
  1. KLONOPIN [Suspect]
     Indication: INSOMNIA
     Dosage: 1 MG   1/NIGHT  PO
     Route: 048
     Dates: start: 20010301, end: 20050728

REACTIONS (5)
  - ABNORMAL DREAMS [None]
  - CIRCADIAN RHYTHM SLEEP DISORDER [None]
  - DIZZINESS [None]
  - INSOMNIA [None]
  - MEMORY IMPAIRMENT [None]
